FAERS Safety Report 15842843 (Version 1)
Quarter: 2018Q4

REPORT INFORMATION
  Report Type: Spontaneous
  Country: US (occurrence: US)
  Receive Date: 20181226
  Receipt Date: 20181226
  Transmission Date: 20190205
  Serious: Yes (Life-Threatening, Hospitalization)
  Sender: FDA-Public Use
  Company Number: None

PATIENT
  Age: 70 Year
  Sex: Male
  Weight: 110 kg

DRUGS (1)
  1. LIRAGLUTIDE 6MG/ML PDS290 [Suspect]
     Active Substance: LIRAGLUTIDE
     Indication: TYPE 2 DIABETES MELLITUS
     Dosage: ?          OTHER DOSE:1.8MG;?
     Route: 058
     Dates: start: 20171130, end: 20181212

REACTIONS (3)
  - Sepsis [None]
  - Bile duct obstruction [None]
  - Cholecystitis [None]

NARRATIVE: CASE EVENT DATE: 20181212
